FAERS Safety Report 7961483-3 (Version None)
Quarter: 2011Q4

REPORT INFORMATION
  Report Type: 
  Country: None (occurrence: None)
  Receive Date: 20111202
  Receipt Date: 20111124
  Transmission Date: 20120403
  Serious: Yes (Other)
  Sender: FDA-Public Use
  Company Number: 2011MA016955

PATIENT
  Sex: Female

DRUGS (3)
  1. SERTRALINE HYDROCHLORIDE [Suspect]
     Indication: ANXIETY DISORDER
     Dosage: 150 MG;QD;PO
     Route: 048
  2. SERTRALINE HYDROCHLORIDE [Suspect]
     Dosage: 150 MG;QD;PO
     Route: 048
  3. PAROXETINE HCL [Concomitant]

REACTIONS (3)
  - ABORTION INDUCED [None]
  - MATERNAL EXPOSURE DURING PREGNANCY [None]
  - ULTRASOUND ANTENATAL SCREEN ABNORMAL [None]
